FAERS Safety Report 8738922 (Version 2)
Quarter: 2012Q4

REPORT INFORMATION
  Report Type: 
  Country: US (occurrence: US)
  Receive Date: 20120823
  Receipt Date: 20120927
  Transmission Date: 20130627
  Serious: Yes (Hospitalization, Other)
  Sender: FDA-Public Use
  Company Number: US-PFIZER INC-2012204864

PATIENT
  Age: 63 Year
  Sex: Male

DRUGS (1)
  1. INLYTA [Suspect]
     Indication: RENAL CANCER STAGE IV
     Dosage: 5 mg, 2x/day
     Dates: start: 20120830

REACTIONS (2)
  - Pneumonia [Unknown]
  - Oral fungal infection [Unknown]
